FAERS Safety Report 14515881 (Version 1)
Quarter: 2018Q1

REPORT INFORMATION
  Report Type: Report from Study
  Country: US (occurrence: US)
  Receive Date: 20180211
  Receipt Date: 20180211
  Transmission Date: 20180509
  Serious: No
  Sender: FDA-Public Use
  Company Number: US-PUMA BIOTECHNOLOGY, LTD.-2017US016304

PATIENT

DRUGS (4)
  1. NERLYNX [Suspect]
     Active Substance: NERATINIB
     Dosage: 80 MG, DAILY
     Route: 048
     Dates: start: 20171214, end: 20171227
  2. NERLYNX [Suspect]
     Active Substance: NERATINIB
     Dosage: 40 MG, DAILY
     Route: 048
     Dates: start: 20171130, end: 20171213
  3. NERLYNX [Suspect]
     Active Substance: NERATINIB
     Dosage: 120 MG, DAILY
     Route: 048
     Dates: start: 20171228
  4. NERLYNX [Suspect]
     Active Substance: NERATINIB
     Indication: BREAST CANCER
     Dosage: 240 MG, DAILY
     Route: 048
     Dates: start: 20171118, end: 20171120

REACTIONS (3)
  - Nausea [Not Recovered/Not Resolved]
  - Fatigue [Unknown]
  - Chills [Unknown]
